FAERS Safety Report 9332980 (Version 2)
Quarter: 2013Q2

REPORT INFORMATION
  Report Type: Spontaneous
  Country: US (occurrence: None)
  Receive Date: 20130603
  Receipt Date: 20130618
  Transmission Date: 20140414
  Serious: Yes (Hospitalization, Other)
  Sender: FDA-Public Use
  Company Number: AUR-APL-2013-04472

PATIENT
  Sex: Female

DRUGS (1)
  1. LEVOFLOXACIN [Suspect]
     Indication: PRODUCT USED FOR UNKNOWN INDICATION

REACTIONS (12)
  - Headache [None]
  - Dizziness [None]
  - Diarrhoea [None]
  - Nausea [None]
  - Dyspnoea [None]
  - Panic attack [None]
  - Pulmonary mass [None]
  - Formication [None]
  - Hallucination [None]
  - Tremor [None]
  - Atrial fibrillation [None]
  - Memory impairment [None]
